FAERS Safety Report 24131574 (Version 2)
Quarter: 2024Q3

REPORT INFORMATION
  Report Type: Spontaneous
  Country: US (occurrence: US)
  Receive Date: 20240724
  Receipt Date: 20240808
  Transmission Date: 20241016
  Serious: Yes (Other)
  Sender: TAKEDA
  Company Number: US-TAKEDA-2024TUS073332

PATIENT
  Age: 37 Year
  Sex: Male

DRUGS (7)
  1. ENTYVIO [Suspect]
     Active Substance: VEDOLIZUMAB
     Indication: Colitis ulcerative
     Dosage: 300 MILLIGRAM
     Route: 042
  2. MESALAMINE [Suspect]
     Active Substance: MESALAMINE
     Indication: Product used for unknown indication
     Dosage: UNK
     Route: 065
  3. METAMUCIL [Suspect]
     Active Substance: PLANTAGO SEED
     Indication: Product used for unknown indication
     Dosage: UNK UNK, BID
     Route: 065
  4. IMODIUM AD [Concomitant]
     Active Substance: LOPERAMIDE HYDROCHLORIDE
     Dosage: UNK
  5. CLARITIN [Concomitant]
     Active Substance: LORATADINE
     Dosage: UNK
  6. ACETAMINOPHEN [Concomitant]
     Active Substance: ACETAMINOPHEN
     Dosage: UNK
  7. FOLIC ACID [Concomitant]
     Active Substance: FOLIC ACID
     Dosage: UNK

REACTIONS (13)
  - Colitis ulcerative [Unknown]
  - Weight decreased [Unknown]
  - Muscle atrophy [Unknown]
  - Remission not achieved [Unknown]
  - Faeces soft [Unknown]
  - Abnormal faeces [Unknown]
  - Mucous stools [Unknown]
  - Defaecation urgency [Unknown]
  - Flatulence [Unknown]
  - Haemorrhoids [Unknown]
  - Diarrhoea [Unknown]
  - Drug effect less than expected [Unknown]
  - Fatigue [Unknown]

NARRATIVE: CASE EVENT DATE: 20230315
